FAERS Safety Report 10917867 (Version 1)
Quarter: 2015Q1

REPORT INFORMATION
  Report Type: Spontaneous
  Country: FR (occurrence: None)
  Receive Date: 20150311
  Receipt Date: 20150311
  Transmission Date: 20150721
  Serious: Yes (Death)
  Sender: FDA-Public Use
  Company Number: FR-DEXPHARM-20150153

PATIENT
  Age: 77 Year
  Sex: Female

DRUGS (7)
  1. DICLOFENAC (FIXED DOSE COMBINATION OF DICLOFENAC/MISOPROSTOL (50/0.2 MG/DAY) [Suspect]
     Active Substance: DICLOFENAC
     Indication: BACK PAIN
     Dosage: INTERVAL
  2. RILMENIDINE [Concomitant]
     Active Substance: RILMENIDINE
  3. HYDROCHLOROTHIAZIDE. [Concomitant]
     Active Substance: HYDROCHLOROTHIAZIDE
  4. LOSARTAN [Concomitant]
     Active Substance: LOSARTAN
  5. INSULIN [Concomitant]
     Active Substance: INSULIN NOS
  6. FLUINDIONE [Concomitant]
     Active Substance: FLUINDIONE
  7. TRAMADOL [Concomitant]
     Active Substance: TRAMADOL

REACTIONS (9)
  - Overdose [None]
  - Acute hepatitis B [None]
  - Acute kidney injury [None]
  - Hypovolaemic shock [None]
  - Anaemia [None]
  - Gastrointestinal haemorrhage [None]
  - Acute hepatic failure [None]
  - Multi-organ failure [None]
  - Hepatic encephalopathy [None]
